FAERS Safety Report 9735870 (Version 1)
Quarter: 2013Q4

REPORT INFORMATION
  Report Type: Spontaneous
  Country: US (occurrence: US)
  Receive Date: 20131206
  Receipt Date: 20131206
  Transmission Date: 20140711
  Serious: No
  Sender: FDA-Public Use
  Company Number: US-GILEAD-2009-0024176

PATIENT
  Sex: Male
  Weight: 139.25 kg

DRUGS (15)
  1. LETAIRIS [Suspect]
     Indication: PULMONARY ARTERIAL HYPERTENSION
     Route: 048
     Dates: start: 20081030
  2. REVATIO [Concomitant]
  3. WARFARIN [Concomitant]
  4. LISINOPRIL [Concomitant]
  5. PULMICORT [Concomitant]
  6. DOXEPIN [Concomitant]
  7. THEOPHYLLINE [Concomitant]
  8. SPIRIVA [Concomitant]
  9. SINGULAIR [Concomitant]
  10. FLUOXETINE [Concomitant]
  11. SEREVENT [Concomitant]
  12. LORATADINE [Concomitant]
  13. ZYFLO [Concomitant]
  14. FLONASE [Concomitant]
  15. MULTIVITAMIN [Concomitant]

REACTIONS (2)
  - Musculoskeletal chest pain [Unknown]
  - Musculoskeletal pain [Unknown]
